FAERS Safety Report 4295420-2 (Version None)
Quarter: 2004Q1

REPORT INFORMATION
  Report Type: 
  Country: None (occurrence: None)
  Receive Date: 20040212
  Receipt Date: 20030826
  Transmission Date: 20041129
  Serious: Yes (Life-Threatening, Hospitalization, Disabling)
  Sender: FDA-Public Use
  Company Number: F04200300126

PATIENT
  Age: 81 Year
  Sex: Female

DRUGS (7)
  1. ARIXTRA [Suspect]
     Indication: FEMUR FRACTURE
     Dosage: 2.5 MG OD, SUBCUTANEOUS
     Route: 058
     Dates: start: 20030528, end: 20030605
  2. ARIXTRA [Suspect]
     Indication: HIP ARTHROPLASTY
     Dosage: 2.5 MG OD, SUBCUTANEOUS
     Route: 058
     Dates: start: 20030528, end: 20030605
  3. ARIXTRA [Suspect]
     Indication: THROMBOSIS PROPHYLAXIS
     Dosage: 2.5 MG OD, SUBCUTANEOUS
     Route: 058
     Dates: start: 20030528, end: 20030605
  4. PANTOZOL (PANTOPRAZOLE SODIUM) [Concomitant]
  5. FERROSANOL (FERROGLYCINE SULFATE COMPLEX) [Concomitant]
  6. DIGOXIN [Concomitant]
  7. VOLTAREN [Concomitant]

REACTIONS (3)
  - ANAEMIA POSTOPERATIVE [None]
  - APHASIA [None]
  - CEREBROVASCULAR ACCIDENT [None]
